FAERS Safety Report 6298836-8 (Version None)
Quarter: 2009Q3

REPORT INFORMATION
  Report Type: 
  Country: None (occurrence: None)
  Receive Date: 20090806
  Receipt Date: 20090729
  Transmission Date: 20100115
  Serious: Yes (Hospitalization)
  Sender: FDA-Public Use
  Company Number: JP-PFIZER INC-2009184644

PATIENT
  Age: 69 Year

DRUGS (7)
  1. CHAMPIX [Suspect]
     Indication: NICOTINE DEPENDENCE
     Dosage: UNK
     Route: 048
     Dates: start: 20081211, end: 20081224
  2. HERBESSER [Suspect]
     Dosage: UNKNOWN
     Route: 048
     Dates: start: 20050101
  3. BLADDERON [Suspect]
     Dosage: UNKNOWN
     Route: 048
     Dates: start: 20050101
  4. PARIET [Concomitant]
     Dosage: UNKNOWN
     Route: 048
     Dates: start: 20050101
  5. EVIPROSTAT [Concomitant]
     Dosage: UNKNOWN
     Route: 048
     Dates: start: 20050101
  6. MAGNESIUM OXIDE [Concomitant]
     Dosage: UNKNOWN
     Route: 048
     Dates: start: 20050101
  7. BIOFERMIN [Concomitant]
     Dosage: UNKNOWN
     Route: 048
     Dates: start: 20050101

REACTIONS (6)
  - DECREASED APPETITE [None]
  - LIVER DISORDER [None]
  - MALAISE [None]
  - NAUSEA [None]
  - PALPITATIONS [None]
  - VOMITING [None]
